FAERS Safety Report 5235684-1 (Version None)
Quarter: 2007Q1

REPORT INFORMATION
  Report Type: 
  Country: None (occurrence: None)
  Receive Date: 20070212
  Receipt Date: 20070201
  Transmission Date: 20070707
  Serious: Yes (Hospitalization)
  Sender: FDA-Public Use
  Company Number: AU-ROCHE-481155

PATIENT
  Age: 28 Year
  Sex: Female

DRUGS (4)
  1. CEFTRIAXONE SODIUM [Suspect]
     Indication: PNEUMONIA
     Route: 065
     Dates: start: 20061007, end: 20061009
  2. AZITHROMYCIN [Suspect]
     Indication: PNEUMONIA
     Route: 065
     Dates: start: 20061007, end: 20061009
  3. LEVOTHYROXINE SODIUM [Concomitant]
  4. VENTOLIN [Concomitant]
     Dates: start: 20061007, end: 20061010

REACTIONS (1)
  - BRADYCARDIA [None]
